FAERS Safety Report 9164121 (Version 1)
Quarter: 2013Q1

REPORT INFORMATION
  Report Type: Spontaneous
  Country: BR (occurrence: BR)
  Receive Date: 20130315
  Receipt Date: 20130315
  Transmission Date: 20140127
  Serious: Yes (Other)
  Sender: FDA-Public Use
  Company Number: BR-AMGEN-BRASP2012003806

PATIENT
  Age: 42 Year
  Sex: Female
  Weight: 62 kg

DRUGS (12)
  1. ENBREL [Suspect]
     Indication: ANKYLOSING SPONDYLITIS
     Dosage: 25.0 MG, 2X/WEEK
     Route: 058
     Dates: start: 20090828, end: 20100317
  2. ENBREL [Suspect]
     Dosage: 50 MG, QWK
     Route: 058
     Dates: start: 200908
  3. ENBREL [Suspect]
     Dosage: UNK
     Dates: start: 2010
  4. OMEPRAZOLE [Concomitant]
     Dosage: 20 MG, 1X/DAY
  5. METICORTEN [Concomitant]
     Dosage: UNK MG, 1X/DAY
  6. AZULFIDINE [Concomitant]
     Dosage: UNK
  7. PREDNISONE [Concomitant]
     Dosage: 5 MG, 1X/DAY
  8. METHOTREXATE [Concomitant]
     Dosage: 6 TABLETS OF 2.5MG
  9. FLOTAC                             /00372301/ [Concomitant]
     Dosage: 70 MG, 2X/DAY
  10. LORATADINE [Concomitant]
     Dosage: 10MG FOR 5 DAYS
  11. FOLIC ACID [Concomitant]
     Dosage: UNK
  12. DICLOFENAC [Concomitant]
     Dosage: UNK

REACTIONS (9)
  - Breast cancer [Unknown]
  - Immunosuppression [Unknown]
  - Nodule [Unknown]
  - Injection site swelling [Unknown]
  - Hypersensitivity [Unknown]
  - Injection site erythema [Not Recovered/Not Resolved]
  - Injection site pruritus [Not Recovered/Not Resolved]
  - Injection site warmth [Not Recovered/Not Resolved]
  - Injection site pain [Unknown]
